FAERS Safety Report 12785048 (Version 2)
Quarter: 2016Q4

REPORT INFORMATION
  Report Type: Report from Study
  Country: None (occurrence: IL)
  Receive Date: 20160927
  Receipt Date: 20161108
  Transmission Date: 20170207
  Serious: Yes (Hospitalization, Other)
  Sender: FDA-Public Use
  Company Number: IL-ABBVIE-16K-082-1737816-00

PATIENT
  Sex: Male

DRUGS (2)
  1. HUMIRA [Suspect]
     Active Substance: ADALIMUMAB
     Indication: RHEUMATOID ARTHRITIS
     Route: 058
     Dates: start: 20150727
  2. LYRICA [Concomitant]
     Active Substance: PREGABALIN
     Indication: MUSCULAR WEAKNESS

REACTIONS (3)
  - Haemorrhage [Unknown]
  - Therapeutic response unexpected [Recovering/Resolving]
  - Abdominal hernia [Recovering/Resolving]
